FAERS Safety Report 4986693-9 (Version None)
Quarter: 2006Q2

REPORT INFORMATION
  Report Type: 
  Country: None (occurrence: None)
  Receive Date: 20060428
  Receipt Date: 20051019
  Transmission Date: 20061013
  Serious: Yes (Hospitalization, Disabling)
  Sender: FDA-Public Use
  Company Number: US-MERCK-0510USA08144

PATIENT
  Age: 39 Year
  Sex: Female
  Weight: 59 kg

DRUGS (3)
  1. VIOXX [Suspect]
     Indication: BACK PAIN
     Route: 048
     Dates: start: 20010101, end: 20040101
  2. TYLENOL (CAPLET) [Concomitant]
     Route: 065
  3. ZANTAC [Concomitant]
     Route: 065

REACTIONS (13)
  - ABDOMINAL PAIN UPPER [None]
  - ADVERSE EVENT [None]
  - ANGIOPATHY [None]
  - BRONCHITIS [None]
  - CEREBROVASCULAR ACCIDENT [None]
  - DEPRESSION [None]
  - DYSPEPSIA [None]
  - DYSPNOEA [None]
  - FALL [None]
  - GASTRITIS [None]
  - MULTIPLE SCLEROSIS [None]
  - ULCER [None]
  - URINARY INCONTINENCE [None]
